FAERS Safety Report 8178603-0 (Version None)
Quarter: 2012Q1

REPORT INFORMATION
  Report Type: 
  Country: None (occurrence: None)
  Receive Date: 20120301
  Receipt Date: 20120227
  Transmission Date: 20120608
  Serious: Yes (Other)
  Sender: FDA-Public Use
  Company Number: RU-ABBOTT-12P-251-0906326-00

PATIENT

DRUGS (6)
  1. PREDNISOLONE [Concomitant]
     Indication: PRODUCT USED FOR UNKNOWN INDICATION
     Dosage: LUMBAR
  2. ATROPINE [Concomitant]
     Indication: PREMEDICATION
     Dosage: AGE-SPECIFIC DOSAGE, ONCE
  3. CYTOSAR-U [Concomitant]
     Indication: PRODUCT USED FOR UNKNOWN INDICATION
     Dosage: LUMBAR
  4. SEVOFLURANE [Suspect]
     Dosage: 2 L/MIN AND 3-3.5 VOL.% FOR 10-15 MIN
     Route: 055
  5. METHOTREXATE [Suspect]
     Indication: NEOPLASM MALIGNANT
     Dosage: LUMBAR
  6. SEVOFLURANE [Suspect]
     Indication: INDUCTION AND MAINTENANCE OF ANAESTHESIA
     Dosage: 6-8 L/MIN UP TO 1-2 NARCOSIS STAGE
     Route: 055

REACTIONS (3)
  - NAUSEA [None]
  - VOMITING [None]
  - HYPERTHERMIA [None]
